FAERS Safety Report 8229157-1 (Version None)
Quarter: 2012Q1

REPORT INFORMATION
  Report Type: 
  Country: None (occurrence: None)
  Receive Date: 20120322
  Receipt Date: 20120314
  Transmission Date: 20120608
  Serious: Yes (Death, Other)
  Sender: FDA-Public Use
  Company Number: CA-CELGENEUS-028-21880-12031672

PATIENT
  Sex: Male
  Weight: 83 kg

DRUGS (10)
  1. HUMALOG [Concomitant]
     Route: 065
  2. ATORVASTATIN [Concomitant]
     Dosage: 20 MILLIGRAM
     Route: 065
  3. REVLIMID [Suspect]
     Indication: MULTIPLE MYELOMA
     Dosage: 25 MILLIGRAM
     Route: 048
     Dates: start: 20100901, end: 20111201
  4. DEXAMETHASONE [Suspect]
     Indication: MULTIPLE MYELOMA
     Route: 048
     Dates: start: 20100901, end: 20111201
  5. PANTOPRAZOLE SODIUM [Concomitant]
     Dosage: 40 MILLIGRAM
     Route: 065
  6. PAMIDRONATE DISODIUM [Concomitant]
     Dosage: 90 MILLIGRAM
     Route: 041
  7. HUMULIN R [Concomitant]
     Route: 065
  8. GABAPENTIN [Concomitant]
     Dosage: 300 MILLIGRAM
     Route: 065
  9. ASPIRIN [Concomitant]
     Dosage: 81 MILLIGRAM
     Route: 065
  10. HYDROMORPHONE HCL [Concomitant]
     Dosage: 4 MILLIGRAM
     Route: 048

REACTIONS (1)
  - ACUTE LEUKAEMIA [None]
